FAERS Safety Report 10035870 (Version 1)
Quarter: 2014Q1

REPORT INFORMATION
  Report Type: Spontaneous
  Country: US (occurrence: None)
  Receive Date: 20140306
  Receipt Date: 20140306
  Transmission Date: 20141002
  Serious: Yes (Hospitalization, Other)
  Sender: FDA-Public Use
  Company Number: 163-21880-13062427

PATIENT
  Age: 57 Year
  Sex: Female

DRUGS (11)
  1. AFRIN (OXYMETAZOLINE HYDROCHLORIDE) [Concomitant]
  2. ATIVAN (LORAZEPAM) [Concomitant]
  3. HYDROXYZINE HCL (HYDROXYZINE HYDROCHLORIDE) [Concomitant]
  4. DEXAMETHASONE (DEXAMETHASONE) [Concomitant]
  5. AMOXICILLIN (AMOXICILLIN) [Concomitant]
  6. ACYCLOVIR (ACICLOVIR) [Concomitant]
  7. ASPIRIN (ACETYLSALICYLIC ACID) (ENTERIC-COATED TABLET) [Concomitant]
  8. NEXIUM DR (ESOMEPRAZOLE) [Concomitant]
  9. REVLIMID (LENALIDOMIDE) (10 MILLIGRAM, CAPSULES) [Suspect]
     Indication: PLASMA CELL MYELOMA
     Dosage: 10 MG, 21 IN 21 D, PO
     Route: 048
     Dates: start: 20121015
  10. KLOR-CON (POTASSIUM CHLORIDE) [Concomitant]
  11. METRONIDAZOLE (METRONIDAZOLE) [Concomitant]

REACTIONS (6)
  - Thrombosis [None]
  - Pulmonary thrombosis [None]
  - Diarrhoea [None]
  - Fatigue [None]
  - Pruritus [None]
  - Rash [None]
